FAERS Safety Report 10193639 (Version 1)
Quarter: 2014Q2

REPORT INFORMATION
  Report Type: Spontaneous
  Country: US (occurrence: US)
  Receive Date: 20140524
  Receipt Date: 20140524
  Transmission Date: 20141212
  Serious: No
  Sender: FDA-Public Use
  Company Number: US-SA-2013SA135643

PATIENT
  Age: 82 Year
  Sex: Female

DRUGS (3)
  1. LANTUS SOLOSTAR [Suspect]
     Dosage: DOSE:45 UNIT(S)
     Route: 051
  2. SOLOSTAR [Concomitant]
  3. NOVOLOG [Concomitant]
     Dosage: DOSE: 20,10 AND 9 UNITS DAILY

REACTIONS (1)
  - Memory impairment [Unknown]
